FAERS Safety Report 19358281 (Version 4)
Quarter: 2022Q3

REPORT INFORMATION
  Report Type: Other
  Country: US (occurrence: None)
  Receive Date: 20210601
  Receipt Date: 20220902
  Transmission Date: 20221027
  Serious: Yes (Life-Threatening, Other)
  Sender: FDA-Public Use
  Company Number: US-ROCHE-2837431

PATIENT
  Age: 56 Year
  Sex: Female
  Weight: 108.96 kg

DRUGS (12)
  1. OCREVUS [Suspect]
     Active Substance: OCRELIZUMAB
     Indication: Relapsing multiple sclerosis
     Dosage: DATE OF TREATMENT: 17/NOV/2017
     Route: 042
     Dates: start: 20171103
  2. OCREVUS [Suspect]
     Active Substance: OCRELIZUMAB
     Dosage: DATE OF TREATMENT: 06/NOV/2018, 24/SEP/2019, 07/OCT/2019, 09/MAR/2020, 24/AUG/2020, 16/MAY/2021, 15/
     Route: 042
     Dates: start: 20180516
  3. GABAPENTIN [Suspect]
     Active Substance: GABAPENTIN
     Indication: Product used for unknown indication
     Dosage: 300 MG 3 TIMES A DAY
     Route: 065
  4. TIZANIDINE HYDROCHLORIDE [Suspect]
     Active Substance: TIZANIDINE HYDROCHLORIDE
     Indication: Product used for unknown indication
     Dosage: 4 MG, TAKE ONE EVERY 6 HOURS AS NEEDED
     Route: 065
  5. LISINOPRIL [Suspect]
     Active Substance: LISINOPRIL
     Indication: Product used for unknown indication
     Dosage: 20 MG EVERY DAY
     Route: 065
  6. AMPYRA [Suspect]
     Active Substance: DALFAMPRIDINE
     Indication: Product used for unknown indication
     Dosage: 10 MG EVERY 12 HOURS
     Route: 065
  7. DITROPAN XL [Concomitant]
     Active Substance: OXYBUTYNIN CHLORIDE
     Dosage: CONTROLLED RELEASE
  8. AMPYRA [Concomitant]
     Active Substance: DALFAMPRIDINE
     Dosage: SUSTAINED RELEASE 12 HOURS
  9. HYGROTON [Concomitant]
     Active Substance: CHLORTHALIDONE
  10. PREGNYL [Concomitant]
     Active Substance: CHORIOGONADOTROPIN ALFA
  11. NALTREXONE [Concomitant]
     Active Substance: NALTREXONE
  12. PHENTERMINE [Concomitant]
     Active Substance: PHENTERMINE

REACTIONS (18)
  - Genitourinary tract infection [Unknown]
  - Influenza [Unknown]
  - Asthma [Not Recovered/Not Resolved]
  - Oral herpes [Unknown]
  - COVID-19 [Recovered/Resolved]
  - Blood calcium increased [Unknown]
  - Hypomagnesaemia [Unknown]
  - Asthenia [Unknown]
  - Fatigue [Unknown]
  - Vitamin D deficiency [Unknown]
  - Gastrooesophageal reflux disease [Unknown]
  - Hypertension [Unknown]
  - Muscle spasms [Unknown]
  - Abdominal discomfort [Unknown]
  - Weight increased [Unknown]
  - Multiple sclerosis relapse [Unknown]
  - Alopecia [Not Recovered/Not Resolved]
  - Infusion related reaction [Recovered/Resolved]

NARRATIVE: CASE EVENT DATE: 20201001
